FAERS Safety Report 14204815 (Version 1)
Quarter: 2017Q4

REPORT INFORMATION
  Report Type: Spontaneous
  Country: US (occurrence: US)
  Receive Date: 20171118
  Receipt Date: 20171118
  Transmission Date: 20180321
  Serious: Yes (Life-Threatening, Hospitalization, Disabling, Other)
  Sender: FDA-Public Use
  Company Number: None

PATIENT
  Sex: Female
  Weight: 119.25 kg

DRUGS (19)
  1. FLUOXETINE [Concomitant]
     Active Substance: FLUOXETINE HYDROCHLORIDE
  2. VITAMIN D2 [Concomitant]
     Active Substance: ERGOCALCIFEROL
  3. MAPAP [Concomitant]
     Active Substance: ACETAMINOPHEN
  4. SUPER B-COMPLEX [Concomitant]
  5. DOXYCYCLINE HYCLATE 100MG CAPSULES [Suspect]
     Active Substance: DOXYCYCLINE HYCLATE
     Indication: ARTHROPOD BITE
     Dosage: ?          QUANTITY:20 CAPSULE(S);?
     Route: 048
     Dates: start: 20150705, end: 20160714
  6. ALPRAZOLAM. [Concomitant]
     Active Substance: ALPRAZOLAM
  7. CYCLOBENZAPRINE. [Concomitant]
     Active Substance: CYCLOBENZAPRINE
  8. FERROUS SULFATE. [Concomitant]
     Active Substance: FERROUS SULFATE
  9. TRAZODONE [Concomitant]
     Active Substance: TRAZODONE HYDROCHLORIDE
  10. LORATADINE. [Concomitant]
     Active Substance: LORATADINE
  11. SE-NATAL [Concomitant]
     Active Substance: .ALPHA.-TOCOPHEROL ACETATE, DL-\CALCIUM CARBONATE\CUPRIC OXIDE\CYANOCOBALAMIN\DOCUSATE SODIUM\ERGOCALCIFEROL\FERROUS FUMARATE\FOLIC ACID\NIACIN\NIACINAMIDE ASCORBATE\POTASSIUM IODIDE\PYRIDOXINE HYDROCHLORIDE\RIBOFLAVIN\THIAMINE MONONITRATE\VITAMIN A ACETATE\ZINC OXIDE
  12. C-PAP MACHINE [Concomitant]
     Active Substance: DEVICE
  13. DOXYCYCLINE HYCLATE 100MG CAPSULES [Suspect]
     Active Substance: DOXYCYCLINE HYCLATE
     Indication: BACTERIAL INFECTION
     Dosage: ?          QUANTITY:20 CAPSULE(S);?
     Route: 048
     Dates: start: 20150705, end: 20160714
  14. ACETAMINOPHEN/COD [Concomitant]
  15. CLINDAMYCIN. [Concomitant]
     Active Substance: CLINDAMYCIN
  16. DOXYCYCLINE HYCLATE 100MG CAPSULES [Suspect]
     Active Substance: DOXYCYCLINE HYCLATE
     Indication: CELLULITIS
     Dosage: ?          QUANTITY:20 CAPSULE(S);?
     Route: 048
     Dates: start: 20150705, end: 20160714
  17. CARVEDILOL. [Concomitant]
     Active Substance: CARVEDILOL
  18. MELOXICAM. [Concomitant]
     Active Substance: MELOXICAM
  19. GABAPENTIN. [Concomitant]
     Active Substance: GABAPENTIN

REACTIONS (13)
  - Fibromyalgia [None]
  - Feeling abnormal [None]
  - Chest pain [None]
  - Decreased appetite [None]
  - Amnesia [None]
  - Toxicity to various agents [None]
  - Insomnia [None]
  - Impaired work ability [None]
  - Pain in extremity [None]
  - Hypertension [None]
  - Abdominal pain upper [None]
  - Skin discolouration [None]
  - Oedema [None]

NARRATIVE: CASE EVENT DATE: 20150708
